FAERS Safety Report 19614622 (Version 2)
Quarter: 2021Q3

REPORT INFORMATION
  Report Type: Spontaneous
  Country: FR (occurrence: FR)
  Receive Date: 20210727
  Receipt Date: 20210728
  Transmission Date: 20211014
  Serious: No
  Sender: FDA-Public Use
  Company Number: FR-UCBSA-2021035347

PATIENT
  Age: 65 Year
  Sex: Male

DRUGS (1)
  1. NEUPRO [Suspect]
     Active Substance: ROTIGOTINE
     Indication: RESTLESS LEGS SYNDROME
     Dosage: 2 MILLIGRAM
     Route: 062
     Dates: start: 2020

REACTIONS (3)
  - Product adhesion issue [Unknown]
  - Product dose omission issue [Unknown]
  - Insomnia [Unknown]

NARRATIVE: CASE EVENT DATE: 202107
